FAERS Safety Report 9265103 (Version 1)
Quarter: 2013Q2

REPORT INFORMATION
  Report Type: Spontaneous
  Country: US (occurrence: US)
  Receive Date: 20130501
  Receipt Date: 20130501
  Transmission Date: 20140414
  Serious: No
  Sender: FDA-Public Use
  Company Number: US-PFIZER INC-2013130091

PATIENT
  Age: 36 Year
  Sex: Male

DRUGS (2)
  1. XELJANZ [Suspect]
     Indication: RHEUMATOID ARTHRITIS
     Dosage: 5 MG, 2X/DAY
     Route: 048
  2. MULTIVITAMINS [Concomitant]
     Dosage: 1 DF, DAILY
     Route: 048

REACTIONS (1)
  - Nasopharyngitis [Recovered/Resolved]
